FAERS Safety Report 20962923 (Version 1)
Quarter: 2022Q2

REPORT INFORMATION
  Report Type: Spontaneous
  Country: CA (occurrence: CA)
  Receive Date: 20220615
  Receipt Date: 20220615
  Transmission Date: 20220721
  Serious: Yes (Other)
  Sender: FDA-Public Use
  Company Number: CA-PFIZER INC-2020447190

PATIENT
  Age: 50 Year
  Sex: Female

DRUGS (5)
  1. METHOTREXATE SODIUM [Suspect]
     Active Substance: METHOTREXATE SODIUM
     Dosage: 25 MG, WEEKLY
     Route: 048
  2. CELEBREX [Concomitant]
     Active Substance: CELECOXIB
     Dosage: 200 MG, DAILY
  3. SYNTHROID [Concomitant]
     Active Substance: LEVOTHYROXINE SODIUM
  4. RITUXIMAB [Concomitant]
     Active Substance: RITUXIMAB
     Indication: Rheumatoid arthritis
     Dosage: 1000 MG AT DAY 1 AND DAY 5
     Route: 042
     Dates: start: 20210217, end: 20210217
  5. RITUXIMAB [Concomitant]
     Active Substance: RITUXIMAB
     Dosage: 1000 MG AT DAY 1 AND DAY 5
     Route: 042
     Dates: start: 20220303, end: 20220303

REACTIONS (6)
  - Condition aggravated [Unknown]
  - C-reactive protein increased [Unknown]
  - Bone erosion [Unknown]
  - Pain [Unknown]
  - Synovitis [Unknown]
  - Rheumatoid factor positive [Unknown]
